FAERS Safety Report 19605230 (Version 2)
Quarter: 2021Q3

REPORT INFORMATION
  Report Type: Report from Study
  Country: AU (occurrence: AU)
  Receive Date: 20210723
  Receipt Date: 20210802
  Transmission Date: 20211014
  Serious: Yes (Death, Other)
  Sender: FDA-Public Use
  Company Number: AU-ASTRAZENECA-2021A634669

PATIENT
  Sex: Male
  Weight: 75 kg

DRUGS (1)
  1. LYNPARZA [Suspect]
     Active Substance: OLAPARIB
     Indication: PROSTATE CANCER
     Route: 048
     Dates: start: 20210520

REACTIONS (2)
  - Malignant neoplasm progression [Fatal]
  - Metastases to bone [Unknown]
